FAERS Safety Report 5248888-9 (Version None)
Quarter: 2007Q1

REPORT INFORMATION
  Report Type: 
  Country: None (occurrence: None)
  Receive Date: 20070228
  Receipt Date: 20060405
  Transmission Date: 20070707
  Serious: No
  Sender: FDA-Public Use
  Company Number: US-GLAXOSMITHKLINE-A0600556A

PATIENT
  Age: 49 Year
  Sex: Female

DRUGS (3)
  1. VALTREX [Suspect]
     Dosage: 1000MG PER DAY
     Route: 048
     Dates: start: 19950101
  2. OVCON-50 [Suspect]
     Indication: ORAL CONTRACEPTION
     Dosage: 1TAB PER DAY
     Route: 048
  3. HERBAL SUPPLEMENTS [Concomitant]

REACTIONS (4)
  - DRUG INEFFECTIVE [None]
  - GASTROINTESTINAL DISORDER [None]
  - HERPES VIRUS INFECTION [None]
  - NAUSEA [None]
